FAERS Safety Report 12948109 (Version 2)
Quarter: 2016Q4

REPORT INFORMATION
  Report Type: Spontaneous
  Country: FR (occurrence: FR)
  Receive Date: 20161117
  Receipt Date: 20161219
  Transmission Date: 20170207
  Serious: Yes (Death, Hospitalization, Other)
  Sender: FDA-Public Use
  Company Number: FR-ACTELION-A-CH2016-145239

PATIENT
  Age: 72 Year
  Sex: Male

DRUGS (3)
  1. TRACLEER [Concomitant]
     Active Substance: BOSENTAN
     Indication: PULMONARY ARTERIAL HYPERTENSION
     Dosage: UNK
     Dates: start: 2009
  2. ADCIRCA [Concomitant]
     Active Substance: TADALAFIL
  3. VELETRI [Suspect]
     Active Substance: EPOPROSTENOL
     Indication: PULMONARY ARTERIAL HYPERTENSION
     Dosage: UNK
     Route: 042
     Dates: start: 2015, end: 20161107

REACTIONS (3)
  - Pulmonary arterial hypertension [Fatal]
  - Right ventricular failure [Fatal]
  - Disease progression [Fatal]
